FAERS Safety Report 20170752 (Version 1)
Quarter: 2021Q4

REPORT INFORMATION
  Report Type: Spontaneous
  Country: EG (occurrence: None)
  Receive Date: 20211210
  Receipt Date: 20211210
  Transmission Date: 20220303
  Serious: Yes (Death, Hospitalization)
  Sender: FDA-Public Use
  Company Number: EG-ROCHE-2971481

PATIENT
  Age: 63 Year
  Sex: Female

DRUGS (3)
  1. GAZYVA [Suspect]
     Active Substance: OBINUTUZUMAB
     Indication: Chronic leukaemia
     Route: 042
  2. IMBRUVICA [Concomitant]
     Active Substance: IBRUTINIB
     Indication: Chronic leukaemia
  3. BENDAMUSTINE [Concomitant]
     Active Substance: BENDAMUSTINE
     Indication: Chronic leukaemia

REACTIONS (12)
  - Death [Fatal]
  - Dyspnoea [Unknown]
  - Hypertension [Unknown]
  - Seizure [Unknown]
  - Heart rate increased [Unknown]
  - Investigation abnormal [Unknown]
  - Skin laceration [Unknown]
  - Lung disorder [Unknown]
  - White blood cell count decreased [Unknown]
  - Platelet count decreased [Unknown]
  - Hallucination [Unknown]
  - Cerebrovascular accident [Unknown]
